FAERS Safety Report 6487118-7 (Version None)
Quarter: 2009Q4

REPORT INFORMATION
  Report Type: 
  Country: None (occurrence: None)
  Receive Date: 20091209
  Receipt Date: 20091209
  Transmission Date: 20100525
  Serious: Yes (Life-Threatening, Hospitalization)
  Sender: FDA-Public Use
  Company Number: None

PATIENT
  Age: 50 Year
  Sex: Female
  Weight: 61.2356 kg

DRUGS (2)
  1. THYROID TAB [Suspect]
     Indication: HYPOTHYROIDISM
     Dosage: 60MG ONCE DAILY PO
     Route: 048
     Dates: start: 20090501, end: 20091110
  2. THYROID TAB [Suspect]
     Indication: HYPOTHYROIDISM
     Dosage: 30MG ONCE DAILY PO
     Route: 048
     Dates: start: 20090501, end: 20091110

REACTIONS (7)
  - CHEST PAIN [None]
  - CONDITION AGGRAVATED [None]
  - DYSPNOEA [None]
  - HYPOTHYROIDISM [None]
  - PALPITATIONS [None]
  - PRODUCT QUALITY ISSUE [None]
  - PRODUCT SUBSTITUTION ISSUE [None]
